FAERS Safety Report 16804770 (Version 1)
Quarter: 2019Q3

REPORT INFORMATION
  Report Type: Spontaneous
  Country: US (occurrence: US)
  Receive Date: 20190724
  Receipt Date: 20190724
  Transmission Date: 20191005
  Serious: Yes (Hospitalization)
  Sender: FDA-Public Use
  Company Number: None

PATIENT
  Age: 73 Year
  Sex: Female
  Weight: 56 kg

DRUGS (7)
  1. SOLIFENACIN 5 MG PO DAILY-HS [Concomitant]
  2. ATORVASTATIN [Concomitant]
     Active Substance: ATORVASTATIN
  3. MIRABEGRON ER 25 MG DAILY-HS [Concomitant]
  4. VITAMIN D 1,000 UNITS QD [Concomitant]
  5. MIRALAX 17 GRAMS QD [Concomitant]
  6. ALENDRONATE 70 MG [Suspect]
     Active Substance: ALENDRONATE SODIUM
     Indication: OSTEOPOROSIS
     Dates: start: 20190525, end: 20190601
  7. CHLORTHALIDONE 25 MG QD [Concomitant]

REACTIONS (10)
  - Chest pain [None]
  - Pharyngitis streptococcal [None]
  - Dysphagia [None]
  - Dyspnoea [None]
  - Hypophagia [None]
  - Fluid intake reduced [None]
  - Foreign body in respiratory tract [None]
  - Oxygen saturation decreased [None]
  - Hypokalaemia [None]
  - Asthenia [None]

NARRATIVE: CASE EVENT DATE: 20190529
